FAERS Safety Report 5813820-3 (Version None)
Quarter: 2008Q3

REPORT INFORMATION
  Report Type: 
  Country: None (occurrence: None)
  Receive Date: 20080714
  Receipt Date: 20080702
  Transmission Date: 20090109
  Serious: Yes (Other)
  Sender: FDA-Public Use
  Company Number: 2008017624

PATIENT
  Sex: Female

DRUGS (1)
  1. VISINE II EYE DROPS [Suspect]
     Indication: EYE IRRITATION
     Dosage: 1 OR 2 DROPS FEW TIMES
     Dates: start: 20080502, end: 20080507

REACTIONS (2)
  - EXPIRED DRUG ADMINISTERED [None]
  - EYE IRRITATION [None]
